FAERS Safety Report 10736270 (Version 1)
Quarter: 2015Q1

REPORT INFORMATION
  Report Type: Spontaneous
  Country: US (occurrence: None)
  Receive Date: 20150122
  Receipt Date: 20150122
  Transmission Date: 20150721
  Serious: Yes (Hospitalization)
  Sender: FDA-Public Use
  Company Number: None

PATIENT
  Age: 63 Year
  Sex: Female
  Weight: 84 kg

DRUGS (3)
  1. CARBOPLATIN. [Suspect]
     Active Substance: CARBOPLATIN
     Dates: start: 20141216
  2. BEVACIZUMAB (RHUMAB VEGF) [Suspect]
     Active Substance: BEVACIZUMAB
     Dates: start: 20141216
  3. TAXOL [Suspect]
     Active Substance: PACLITAXEL
     Dates: start: 20141216

REACTIONS (5)
  - Constipation [None]
  - Feeding disorder [None]
  - Diarrhoea [None]
  - Asthenia [None]
  - Fluid intake reduced [None]

NARRATIVE: CASE EVENT DATE: 20141222
